FAERS Safety Report 9716735 (Version 1)
Quarter: 2013Q4

REPORT INFORMATION
  Report Type: Spontaneous
  Country: GB (occurrence: GB)
  Receive Date: 20131127
  Receipt Date: 20131127
  Transmission Date: 20140711
  Serious: Yes (Hospitalization)
  Sender: FDA-Public Use
  Company Number: GB-ACTAVIS-2013-21588

PATIENT
  Age: 50 Year
  Sex: Female
  Weight: 88 kg

DRUGS (2)
  1. DOCETAXEL (UNKNOWN) [Suspect]
     Indication: BREAST CANCER
     Dosage: 200 MG, 1/ THREE WEEKS
     Route: 042
  2. HERCEPTIN [Suspect]
     Indication: BREAST CANCER
     Dosage: 714 MG, UNKNOWN; DOSAGE FORM: 8 MG/KG
     Route: 042
     Dates: start: 20130114

REACTIONS (1)
  - Lower respiratory tract infection [Recovered/Resolved]
